FAERS Safety Report 12506592 (Version 1)
Quarter: 2016Q2

REPORT INFORMATION
  Report Type: Spontaneous
  Country: US (occurrence: US)
  Receive Date: 20160628
  Receipt Date: 20160628
  Transmission Date: 20160815
  Serious: Yes (Other)
  Sender: FDA-Public Use
  Company Number: US-TEVA-672006ACC

PATIENT
  Sex: Female
  Weight: 79 kg

DRUGS (2)
  1. PARAGARD T 380A [Suspect]
     Active Substance: COPPER
     Indication: CONTRACEPTION
     Dates: start: 20160323, end: 20160329
  2. PARAGARD T 380A [Suspect]
     Active Substance: COPPER
     Route: 065
     Dates: start: 20160329

REACTIONS (1)
  - Device dislocation [Recovered/Resolved]
